FAERS Safety Report 18307079 (Version 7)
Quarter: 2020Q4

REPORT INFORMATION
  Report Type: Spontaneous
  Country: US (occurrence: US)
  Receive Date: 20200924
  Receipt Date: 20201124
  Transmission Date: 20210113
  Serious: Yes (Hospitalization, Disabling, Other)
  Sender: FDA-Public Use
  Company Number: US-009507513-2009USA008863

PATIENT
  Sex: Female
  Weight: 67.5 kg

DRUGS (2)
  1. KEYTRUDA [Suspect]
     Active Substance: PEMBROLIZUMAB
     Indication: SOFT TISSUE SARCOMA
     Dosage: 200 MILLIGRAM
     Route: 042
     Dates: start: 202009
  2. KEYTRUDA [Suspect]
     Active Substance: PEMBROLIZUMAB
     Indication: SARCOMA

REACTIONS (17)
  - Muscle atrophy [Unknown]
  - Confusional state [Unknown]
  - Malaise [Not Recovered/Not Resolved]
  - Nausea [Unknown]
  - Neoplasm malignant [Unknown]
  - Gastrooesophageal reflux disease [Unknown]
  - Drug ineffective [Unknown]
  - Bladder disorder [Not Recovered/Not Resolved]
  - Dysphonia [Unknown]
  - Paraneoplastic neurological syndrome [Not Recovered/Not Resolved]
  - Dizziness [Unknown]
  - Blood sodium decreased [Not Recovered/Not Resolved]
  - Product use in unapproved indication [Unknown]
  - Encephalitis [Not Recovered/Not Resolved]
  - Feeling abnormal [Unknown]
  - Vomiting [Unknown]
  - Fatigue [Unknown]

NARRATIVE: CASE EVENT DATE: 2020
